FAERS Safety Report 9855432 (Version 2)
Quarter: 2014Q1

REPORT INFORMATION
  Report Type: Spontaneous
  Country: IT (occurrence: IT)
  Receive Date: 20140130
  Receipt Date: 20140213
  Transmission Date: 20141002
  Serious: Yes (Other)
  Sender: FDA-Public Use
  Company Number: IT-ABBVIE-14P-083-1195116-00

PATIENT
  Age: 46 Year
  Sex: Female

DRUGS (1)
  1. ENANTONE [Suspect]
     Indication: BREAST CANCER
     Dosage: 1 AMPOULE/MONTH, CYCLIC

REACTIONS (2)
  - Menstruation normal [Unknown]
  - Drug ineffective [Unknown]
